FAERS Safety Report 4724701-0 (Version None)
Quarter: 2005Q3

REPORT INFORMATION
  Report Type: 
  Country: None (occurrence: None)
  Receive Date: 20050720
  Receipt Date: 20050720
  Transmission Date: 20060218
  Serious: Yes (Hospitalization)
  Sender: FDA-Public Use
  Company Number: None

PATIENT
  Age: 25 Year
  Sex: Female
  Weight: 70.3075 kg

DRUGS (3)
  1. WAFARIN     10 MG   COUMADIN [Suspect]
     Dates: start: 20031012, end: 20040512
  2. HEPARIN [Suspect]
     Dates: start: 20031012, end: 20031013
  3. LOVENOX [Concomitant]

REACTIONS (1)
  - PULMONARY EMBOLISM [None]
